FAERS Safety Report 4765467-8 (Version None)
Quarter: 2005Q3

REPORT INFORMATION
  Report Type: 
  Country: None (occurrence: None)
  Receive Date: 20050908
  Receipt Date: 20050908
  Transmission Date: 20060218
  Serious: Yes (Hospitalization)
  Sender: FDA-Public Use
  Company Number: None

PATIENT
  Age: 74 Year
  Sex: Female
  Weight: 76.3 kg

DRUGS (6)
  1. METHOTREXATE [Suspect]
     Indication: RHEUMATOID ARTHRITIS
     Dosage: 10 MG IM Q WEEKS
     Route: 030
  2. REMICADE [Concomitant]
  3. FOLIC ACID [Concomitant]
  4. FERROUS SULFATE [Concomitant]
  5. VIT D [Concomitant]
  6. SULAR [Concomitant]

REACTIONS (5)
  - CARDIAC FAILURE [None]
  - DECREASED APPETITE [None]
  - INTERSTITIAL LUNG DISEASE [None]
  - RESTRICTIVE PULMONARY DISEASE [None]
  - WEIGHT DECREASED [None]
